FAERS Safety Report 18901544 (Version 1)
Quarter: 2021Q1

REPORT INFORMATION
  Report Type: Spontaneous
  Country: US (occurrence: US)
  Receive Date: 20210216
  Receipt Date: 20210216
  Transmission Date: 20210420
  Serious: No
  Sender: FDA-Public Use
  Company Number: US-PFIZER INC-2021144427

PATIENT
  Age: 81 Year
  Sex: Female

DRUGS (1)
  1. XELJANZ [Suspect]
     Active Substance: TOFACITINIB CITRATE
     Indication: FIBROMYALGIA
     Dosage: 5 MG

REACTIONS (5)
  - Off label use [Unknown]
  - Arthralgia [Unknown]
  - Abdominal pain lower [Recovering/Resolving]
  - Arthritis [Unknown]
  - Joint stiffness [Unknown]
